FAERS Safety Report 20096394 (Version 2)
Quarter: 2024Q2

REPORT INFORMATION
  Report Type: Report from Study
  Country: JP (occurrence: JP)
  Receive Date: 20211122
  Receipt Date: 20240606
  Transmission Date: 20240716
  Serious: Yes (Disabling, Other)
  Sender: FDA-Public Use
  Company Number: JP-RECORDATI RARE DISEASE INC.-2021004772

PATIENT
  Age: 0 Year
  Sex: Female
  Weight: 1 kg

DRUGS (31)
  1. NEOPROFEN [Suspect]
     Active Substance: IBUPROFEN LYSINE
     Indication: Patent ductus arteriosus
     Dosage: 5.6 MILLIGRAM
     Route: 042
     Dates: start: 20191128, end: 20191128
  2. NEOPROFEN [Suspect]
     Active Substance: IBUPROFEN LYSINE
     Dosage: 2.8 MILLIGRAM
     Route: 042
     Dates: start: 20191129, end: 20191129
  3. NEOPROFEN [Suspect]
     Active Substance: IBUPROFEN LYSINE
     Dosage: 2.8 MILLIGRAM
     Route: 042
     Dates: start: 20191130, end: 20191130
  4. NEOPROFEN [Suspect]
     Active Substance: IBUPROFEN LYSINE
     Dosage: 5.6 MILLIGRAM
     Route: 042
     Dates: start: 20191202, end: 20191202
  5. NEOPROFEN [Suspect]
     Active Substance: IBUPROFEN LYSINE
     Dosage: 2.8 MILLIGRAM
     Route: 042
     Dates: start: 20191203, end: 20191203
  6. NEOPROFEN [Suspect]
     Active Substance: IBUPROFEN LYSINE
     Dosage: 2.8 MILLIGRAM
     Route: 042
     Dates: start: 20191204, end: 20191204
  7. NEOPROFEN [Suspect]
     Active Substance: IBUPROFEN LYSINE
     Dosage: 7 MILLIGRAM
     Route: 042
     Dates: start: 20191231, end: 20191231
  8. NEOPROFEN [Suspect]
     Active Substance: IBUPROFEN LYSINE
     Dosage: 3.5 MILLIGRAM
     Route: 042
     Dates: start: 20200101, end: 20200101
  9. NEOPROFEN [Suspect]
     Active Substance: IBUPROFEN LYSINE
     Dosage: 3.5 MILLIGRAM
     Route: 042
     Dates: start: 20200102, end: 20200102
  10. DOBUTREX [Concomitant]
     Active Substance: DOBUTAMINE HYDROCHLORIDE
     Indication: Cardiac failure acute
     Dosage: UNK
     Route: 042
     Dates: start: 20191127, end: 20191129
  11. AMIKACIN SULFATE [Concomitant]
     Active Substance: AMIKACIN SULFATE
     Indication: Antibiotic prophylaxis
     Dosage: UNK
     Route: 042
     Dates: start: 20191129, end: 20191129
  12. ACOALAN [Concomitant]
     Indication: Coagulation factor deficiency
     Dosage: UNK
     Route: 042
     Dates: start: 20191128, end: 20191130
  13. FACTOR XIII CONCENTRATE (HUMAN) [Concomitant]
     Active Substance: FACTOR XIII CONCENTRATE (HUMAN)
     Indication: Coagulation factor deficiency
     Dosage: UNK
     Route: 042
     Dates: start: 20191127, end: 20191130
  14. THROMBOMODULIN ALFA [Concomitant]
     Active Substance: THROMBOMODULIN ALFA
     Indication: Coagulation factor deficiency
     Dosage: UNK
     Route: 042
     Dates: start: 20191128, end: 20191202
  15. AMPICILLIN SODIUM [Concomitant]
     Active Substance: AMPICILLIN SODIUM
     Indication: Antibiotic prophylaxis
     Dosage: UNK
     Route: 042
     Dates: start: 20191127, end: 20191205
  16. CLAFORAN [Concomitant]
     Active Substance: CEFOTAXIME SODIUM
     Indication: Antibiotic prophylaxis
     Dosage: UNK
     Route: 042
     Dates: start: 20191127, end: 20191205
  17. CALCIUM GLUCONATE [Concomitant]
     Active Substance: CALCIUM GLUCONATE
     Indication: Prophylaxis
     Dosage: UNK
     Route: 042
     Dates: start: 20191127, end: 20191214
  18. CALCIUM GLUCONATE [Concomitant]
     Active Substance: CALCIUM GLUCONATE
     Dosage: UNK
     Route: 042
     Dates: start: 20191226, end: 20200107
  19. MICAFUNGIN SODIUM [Concomitant]
     Active Substance: MICAFUNGIN SODIUM
     Indication: Antifungal prophylaxis
     Dosage: UNK
     Route: 042
     Dates: start: 20191127, end: 20191214
  20. MICONAZOLE [Concomitant]
     Active Substance: MICONAZOLE
     Indication: Antifungal prophylaxis
     Dosage: UNK
     Route: 048
     Dates: start: 20191127, end: 20191217
  21. MENATETRENONE [Concomitant]
     Active Substance: MENATETRENONE
     Indication: Coagulation factor deficiency
     Dosage: UNK
     Route: 042
     Dates: start: 20191127, end: 20191202
  22. SOYBEAN OIL [Concomitant]
     Active Substance: SOYBEAN OIL
     Indication: Nutritional supplementation
     Dosage: UNK
     Route: 042
     Dates: start: 20191128, end: 20191225
  23. SOYBEAN OIL [Concomitant]
     Active Substance: SOYBEAN OIL
     Dosage: UNK
     Route: 042
     Dates: start: 20191228, end: 20200131
  24. SOLU-CORTEF [Concomitant]
     Active Substance: HYDROCORTISONE SODIUM SUCCINATE
     Indication: Chronic respiratory disease
     Dosage: UNK
     Route: 042
     Dates: start: 20191224, end: 20200116
  25. SOLU-CORTEF [Concomitant]
     Active Substance: HYDROCORTISONE SODIUM SUCCINATE
     Indication: Hypotension
  26. CAFFEINE [Concomitant]
     Active Substance: CAFFEINE
     Indication: Apnoeic attack
     Dosage: UNK
     Route: 042
     Dates: start: 20191227, end: 20200115
  27. LEVOTHYROXINE SODIUM [Concomitant]
     Active Substance: LEVOTHYROXINE SODIUM
     Indication: Hypothyroidism
     Dosage: POWDER
     Route: 048
     Dates: start: 20191219, end: 20200114
  28. FUROSEMIDE [Concomitant]
     Active Substance: FUROSEMIDE
     Indication: Circulatory failure neonatal
     Dosage: UNK
     Route: 042
     Dates: start: 20200102, end: 20200102
  29. DOPAMINE HYDROCHLORIDE [Concomitant]
     Active Substance: DOPAMINE HYDROCHLORIDE
     Indication: Cardiac failure acute
     Dosage: UNK
     Route: 042
     Dates: start: 20191127, end: 20191207
  30. HUMULIN R [Concomitant]
     Active Substance: INSULIN HUMAN
     Indication: Hyperglycaemia
     Dosage: UNK
     Route: 042
     Dates: start: 20191202, end: 20191203
  31. CORTRIL [Concomitant]
     Active Substance: HYDROCORTISONE
     Indication: Chronic respiratory disease
     Dosage: TABLET
     Route: 048
     Dates: start: 20191226, end: 20191231

REACTIONS (7)
  - Coagulation factor decreased [Recovering/Resolving]
  - Retinopathy of prematurity [Recovered/Resolved with Sequelae]
  - Hyperglycaemia [Recovering/Resolving]
  - Hypothyroidism [Recovering/Resolving]
  - Bronchopulmonary dysplasia [Recovering/Resolving]
  - Circulatory failure neonatal [Recovering/Resolving]
  - Urine output decreased [Recovering/Resolving]

NARRATIVE: CASE EVENT DATE: 20191202
